FAERS Safety Report 10707310 (Version 4)
Quarter: 2015Q1

REPORT INFORMATION
  Report Type: Spontaneous
  Country: US (occurrence: US)
  Receive Date: 20150113
  Receipt Date: 20150305
  Transmission Date: 20150721
  Serious: Yes (Hospitalization)
  Sender: FDA-Public Use
  Company Number: US-UNITED THERAPEUTICS-UNT-2015-000040

PATIENT
  Age: 32 Year
  Sex: Female
  Weight: 108.84 kg

DRUGS (5)
  1. TYVASO [Suspect]
     Active Substance: TREPROSTINIL
     Indication: PULMONARY HYPERTENSION
     Dosage: 18-54 ?G, QID
     Dates: start: 20141231
  2. TYVASO [Suspect]
     Active Substance: TREPROSTINIL
     Dosage: 18-54 ?G, QID
     Dates: start: 20141231
  3. TYVASO [Suspect]
     Active Substance: TREPROSTINIL
     Dosage: 18-54 ?G, QID
     Dates: start: 20150103
  4. LETAIRIS [Suspect]
     Active Substance: AMBRISENTAN
     Indication: PRODUCT USED FOR UNKNOWN INDICATION
  5. ADCIRCA [Concomitant]
     Active Substance: TADALAFIL
     Indication: PRODUCT USED FOR UNKNOWN INDICATION
     Dosage: 40 MG, QD

REACTIONS (13)
  - Dizziness [Unknown]
  - Nausea [Unknown]
  - Headache [Unknown]
  - Drug hypersensitivity [Unknown]
  - Chest discomfort [Recovered/Resolved]
  - Tooth disorder [Unknown]
  - Chest pain [Unknown]
  - Cough [Recovered/Resolved]
  - Vomiting [Unknown]
  - Therapy cessation [Unknown]
  - Drug intolerance [Recovered/Resolved]
  - Bronchitis [Unknown]
  - Sinus congestion [Unknown]

NARRATIVE: CASE EVENT DATE: 201501
